FAERS Safety Report 17761034 (Version 3)
Quarter: 2020Q2

REPORT INFORMATION
  Report Type: Spontaneous
  Country: US (occurrence: US)
  Receive Date: 20200508
  Receipt Date: 20200521
  Transmission Date: 20200714
  Serious: No
  Sender: FDA-Public Use
  Company Number: US-PFIZER INC-2020184538

PATIENT
  Sex: Male

DRUGS (3)
  1. DOFETILIDE. [Suspect]
     Active Substance: DOFETILIDE
     Indication: ATRIAL FIBRILLATION
     Dosage: UNK
  2. DOFETILIDE. [Suspect]
     Active Substance: DOFETILIDE
     Indication: VENTRICULAR ENLARGEMENT
  3. DOFETILIDE. [Suspect]
     Active Substance: DOFETILIDE
     Indication: AORTIC VALVE INCOMPETENCE

REACTIONS (1)
  - Drug ineffective [Unknown]
